FAERS Safety Report 7440368-5 (Version None)
Quarter: 2011Q2

REPORT INFORMATION
  Report Type: 
  Country: None (occurrence: None)
  Receive Date: 20110427
  Receipt Date: 20110418
  Transmission Date: 20111010
  Serious: Yes (Hospitalization, Other)
  Sender: FDA-Public Use
  Company Number: US-ASTRAZENECA-2011SE22461

PATIENT
  Age: 72 Year
  Sex: Female

DRUGS (3)
  1. PREDNISONE SHOT [Concomitant]
  2. ANTIBIOTICS [Concomitant]
  3. TOPROL-XL [Suspect]
     Route: 048

REACTIONS (5)
  - FALL [None]
  - HOSPITALISATION [None]
  - EXTRASYSTOLES [None]
  - PAIN [None]
  - SURGERY [None]
